FAERS Safety Report 6575253-4 (Version None)
Quarter: 2010Q1

REPORT INFORMATION
  Report Type: 
  Country: None (occurrence: None)
  Receive Date: 20100202
  Receipt Date: 20100122
  Transmission Date: 20100710
  Serious: Yes (Hospitalization)
  Sender: FDA-Public Use
  Company Number: 2010000338

PATIENT
  Age: 48 Year
  Sex: Male
  Weight: 79.3795 kg

DRUGS (7)
  1. ACTIQ [Suspect]
     Indication: PAIN
     Dosage: SEE IMAGE
     Route: 002
     Dates: start: 20020101, end: 20060901
  2. ACTIQ [Suspect]
     Indication: PAIN
     Dosage: SEE IMAGE
     Route: 002
     Dates: start: 20060901, end: 20080801
  3. ACTIQ [Suspect]
     Indication: PAIN
     Dosage: SEE IMAGE
     Route: 002
     Dates: start: 20080801, end: 20100121
  4. ACTIQ [Suspect]
     Indication: PAIN
     Dosage: SEE IMAGE
     Route: 002
     Dates: start: 20090101, end: 20100121
  5. FENTANYL PATCH (PARACETAMOL, ORPHENADRINE CITRATE) (TRANSDERMAL PATCH) [Concomitant]
  6. EFFEXOR [Concomitant]
  7. DIAZEPAM [Concomitant]

REACTIONS (4)
  - DENTAL CARIES [None]
  - DRUG PRESCRIBING ERROR [None]
  - INAPPROPRIATE SCHEDULE OF DRUG ADMINISTRATION [None]
  - OBESITY SURGERY [None]
